FAERS Safety Report 22890015 (Version 3)
Quarter: 2023Q4

REPORT INFORMATION
  Report Type: Spontaneous
  Country: US (occurrence: US)
  Receive Date: 20230831
  Receipt Date: 20231030
  Transmission Date: 20240109
  Serious: Yes (Hospitalization)
  Sender: FDA-Public Use
  Company Number: US-KARYOPHARM-2023KPT001789

PATIENT

DRUGS (2)
  1. XPOVIO [Suspect]
     Active Substance: SELINEXOR
     Indication: Plasma cell myeloma
     Dosage: 60 MG, WEEKLY
     Route: 048
     Dates: start: 20230808, end: 202308
  2. XPOVIO [Suspect]
     Active Substance: SELINEXOR
     Dosage: 40 MG, ONCE WEEKLY FOR WEEKS THEN 1 WEEK OFF
     Route: 048
     Dates: start: 20230808, end: 20231025

REACTIONS (11)
  - Cardiac failure [Unknown]
  - Back pain [Unknown]
  - Cognitive disorder [Unknown]
  - Emotional disorder [Unknown]
  - Depressed mood [Unknown]
  - Insomnia [Unknown]
  - Arthralgia [Unknown]
  - Muscle spasms [Unknown]
  - Nausea [Unknown]
  - Vomiting [Unknown]
  - Asthenia [Unknown]

NARRATIVE: CASE EVENT DATE: 20230101
